FAERS Safety Report 9433613 (Version 3)
Quarter: 2014Q1

REPORT INFORMATION
  Report Type: Spontaneous
  Country: US (occurrence: US)
  Receive Date: 20130731
  Receipt Date: 20140117
  Transmission Date: 20141002
  Serious: Yes (Death, Hospitalization, Other)
  Sender: FDA-Public Use
  Company Number: US-B.I. PHARMACEUTICALS,INC./RIDGEFIELD-2013-BI-22595BP

PATIENT
  Age: 67 Year
  Sex: Female
  Weight: 113.4 kg

DRUGS (15)
  1. PRADAXA [Suspect]
     Indication: ATRIAL FIBRILLATION
     Dosage: 300 MG
     Route: 048
     Dates: start: 20110721, end: 20110804
  2. AMIODARONE [Concomitant]
     Dosage: 200 MG
     Route: 048
  3. CRESTOR [Concomitant]
     Dosage: 20 MG
     Route: 048
  4. ENABLEX [Concomitant]
     Dosage: 50 MG
     Route: 048
  5. HUMANLOG INSULIN [Concomitant]
     Route: 058
  6. LANTUS INSULIN [Concomitant]
     Dosage: 50 U
     Route: 058
  7. LISINOPRIL [Concomitant]
     Dosage: 5 MG
     Route: 048
  8. TOPROL [Concomitant]
     Dosage: 50 MG
     Route: 048
  9. PRAMIPEXOLE [Concomitant]
     Indication: RESTLESS LEGS SYNDROME
     Dosage: 1 MG
     Route: 048
  10. VENLAFAXINE [Concomitant]
     Dosage: 150 MG
     Route: 048
  11. ZOLPIDEM [Concomitant]
     Dosage: 10 MG
     Route: 048
  12. MULTIVITAMIN [Concomitant]
     Route: 048
  13. LORAZEPAM [Concomitant]
     Dosage: 0.5 MG
     Route: 048
  14. ASPIRIN [Concomitant]
     Dosage: 81 MG
     Route: 048
  15. TRAMADOL [Concomitant]
     Route: 048

REACTIONS (8)
  - Gastrointestinal haemorrhage [Fatal]
  - Coagulopathy [Unknown]
  - Renal failure acute [Unknown]
  - Hyperkalaemia [Unknown]
  - Haemorrhagic anaemia [Unknown]
  - Disseminated intravascular coagulation [Unknown]
  - Cardiac arrest [Unknown]
  - Shock haemorrhagic [Unknown]
